FAERS Safety Report 5021042-1 (Version None)
Quarter: 2006Q2

REPORT INFORMATION
  Report Type: 
  Country: None (occurrence: None)
  Receive Date: 20060606
  Receipt Date: 20060606
  Transmission Date: 20061013
  Serious: Yes (Hospitalization)
  Sender: FDA-Public Use
  Company Number: None

PATIENT
  Age: 58 Year
  Sex: Male
  Weight: 71.6683 kg

DRUGS (25)
  1. ERBITUX [Suspect]
     Indication: NEOPLASM MALIGNANT
     Dosage: SEE IMAGE
     Dates: start: 20060125
  2. ERBITUX [Suspect]
     Indication: NEOPLASM MALIGNANT
     Dosage: SEE IMAGE
     Dates: start: 20060201
  3. ERBITUX [Suspect]
     Indication: NEOPLASM MALIGNANT
     Dosage: SEE IMAGE
     Dates: start: 20060208
  4. ERBITUX [Suspect]
     Indication: NEOPLASM MALIGNANT
     Dosage: SEE IMAGE
     Dates: start: 20060214
  5. ERBITUX [Suspect]
     Indication: NEOPLASM MALIGNANT
     Dosage: SEE IMAGE
     Dates: start: 20060221
  6. ERBITUX [Suspect]
     Indication: NEOPLASM MALIGNANT
     Dosage: SEE IMAGE
     Dates: start: 20060321
  7. ERBITUX [Suspect]
     Indication: NEOPLASM MALIGNANT
     Dosage: SEE IMAGE
     Dates: start: 20060328
  8. ERBITUX [Suspect]
     Indication: NEOPLASM MALIGNANT
     Dosage: SEE IMAGE
     Dates: start: 20060404
  9. ERBITUX [Suspect]
     Indication: NEOPLASM MALIGNANT
     Dosage: SEE IMAGE
     Dates: start: 20060522
  10. TAXOL [Suspect]
     Dosage: SEE IMAGE
     Dates: start: 20060125
  11. TAXOL [Suspect]
     Dosage: SEE IMAGE
     Dates: start: 20060201
  12. TAXOL [Suspect]
     Dosage: SEE IMAGE
     Dates: start: 20060208
  13. TAXOL [Suspect]
     Dosage: SEE IMAGE
     Dates: start: 20060214
  14. TAXOL [Suspect]
     Dosage: SEE IMAGE
     Dates: start: 20060221
  15. TAXOL [Suspect]
     Dosage: SEE IMAGE
     Dates: start: 20060321
  16. TAXOL [Suspect]
     Dosage: SEE IMAGE
     Dates: start: 20060328
  17. TAXOL [Suspect]
     Dosage: SEE IMAGE
     Dates: start: 20060404
  18. CARBOPLATIN [Suspect]
     Dosage: SEE IMAGE
     Dates: start: 20060125
  19. CARBOPLATIN [Suspect]
     Dosage: SEE IMAGE
     Dates: start: 20060201
  20. CARBOPLATIN [Suspect]
     Dosage: SEE IMAGE
     Dates: start: 20060208
  21. CARBOPLATIN [Suspect]
     Dosage: SEE IMAGE
     Dates: start: 20060214
  22. CARBOPLATIN [Suspect]
     Dosage: SEE IMAGE
     Dates: start: 20060221
  23. CARBOPLATIN [Suspect]
     Dosage: SEE IMAGE
     Dates: start: 20060321
  24. CARBOPLATIN [Suspect]
     Dosage: SEE IMAGE
     Dates: start: 20060328
  25. CARBOPLATIN [Suspect]
     Dosage: SEE IMAGE
     Dates: start: 20060404

REACTIONS (6)
  - BLOOD CULTURE POSITIVE [None]
  - CATHETER RELATED INFECTION [None]
  - LABORATORY TEST INTERFERENCE [None]
  - PYREXIA [None]
  - STREPTOCOCCAL INFECTION [None]
  - VOMITING [None]
